FAERS Safety Report 12674339 (Version 1)
Quarter: 2016Q3

REPORT INFORMATION
  Report Type: Spontaneous
  Country: US (occurrence: US)
  Receive Date: 20160822
  Receipt Date: 20160822
  Transmission Date: 20161109
  Serious: No
  Sender: FDA-Public Use
  Company Number: US-BEH-2015056247

PATIENT
  Sex: Female
  Weight: 79.38 kg

DRUGS (14)
  1. DIPHENHYDRAMINE. [Concomitant]
     Active Substance: DIPHENHYDRAMINE
  2. OMEPRAZOLE 40 MG [Concomitant]
     Active Substance: OMEPRAZOLE
  3. ZEMAIRA [Suspect]
     Active Substance: .ALPHA.1-PROTEINASE INHIBITOR HUMAN
     Indication: ALPHA-1 ANTI-TRYPSIN DEFICIENCY
     Route: 042
     Dates: start: 20091030
  4. ATIVAN 0.5 MG [Concomitant]
  5. SODIUM CHLORIDE 0.9% [Concomitant]
     Active Substance: SODIUM CHLORIDE
  6. MOMETASONE FUROATE. [Concomitant]
     Active Substance: MOMETASONE FUROATE
  7. LMX [Concomitant]
     Active Substance: LIDOCAINE
  8. ALBUTEROL 90 MCG INHALER [Concomitant]
  9. EPI-PEN AUTOINJECTOR [Concomitant]
  10. LAMOTRIGINE 100 MG [Concomitant]
     Active Substance: LAMOTRIGINE
  11. FORMOTEROL FUMARATE DIHYDRATE [Concomitant]
     Active Substance: FORMOTEROL FUMARATE DIHYDRATE
  12. RISPERIDONE 3 MG [Concomitant]
     Active Substance: RISPERIDONE
  13. SPIRIVA 18 MCG CP-HANDIHALER [Concomitant]
  14. ADVAIR 100-50 DISKUS [Concomitant]

REACTIONS (1)
  - Influenza [Unknown]
